FAERS Safety Report 4719163-3 (Version None)
Quarter: 2005Q3

REPORT INFORMATION
  Report Type: 
  Country: None (occurrence: None)
  Receive Date: 20050720
  Receipt Date: 20050707
  Transmission Date: 20060218
  Serious: Yes (Hospitalization)
  Sender: FDA-Public Use
  Company Number: 214794

PATIENT
  Age: 62 Year
  Sex: Male

DRUGS (4)
  1. MABTHERA           (RITUXIMAB) [Suspect]
     Indication: B-CELL LYMPHOMA
     Route: 042
  2. CISPLATIN [Concomitant]
  3. CYTARABINE [Concomitant]
  4. DEXAMETHASONE [Concomitant]

REACTIONS (1)
  - MUCOSAL INFLAMMATION [None]
